FAERS Safety Report 10758449 (Version 1)
Quarter: 2015Q1

REPORT INFORMATION
  Report Type: Spontaneous
  Country: US (occurrence: None)
  Receive Date: 20150202
  Receipt Date: 20150202
  Transmission Date: 20150721
  Serious: No
  Sender: FDA-Public Use
  Company Number: None

PATIENT
  Age: 48 Year
  Sex: Male
  Weight: 92.99 kg

DRUGS (2)
  1. ZOSYN [Suspect]
     Active Substance: PIPERACILLIN SODIUM\TAZOBACTAM SODIUM
     Indication: INFECTION
     Dosage: 10 MIN
     Route: 042
  2. NORMAL SALINE [Concomitant]
     Active Substance: SODIUM CHLORIDE

REACTIONS (6)
  - Rash [None]
  - Paraesthesia [None]
  - Oral mucosal erythema [None]
  - Swelling [None]
  - Toothache [None]
  - Oral disorder [None]

NARRATIVE: CASE EVENT DATE: 20150131
